FAERS Safety Report 21229736 (Version 2)
Quarter: 2022Q3

REPORT INFORMATION
  Report Type: Report from Study
  Country: AU (occurrence: AU)
  Receive Date: 20220818
  Receipt Date: 20220908
  Transmission Date: 20221027
  Serious: Yes (Hospitalization, Other)
  Sender: FDA-Public Use
  Company Number: AU-BRISTOL-MYERS SQUIBB COMPANY-2022-090119

PATIENT
  Age: 67 Year
  Sex: Male

DRUGS (2)
  1. NIVOLUMAB [Suspect]
     Active Substance: NIVOLUMAB
     Indication: Metastatic malignant melanoma
     Dosage: Q3W
     Route: 042
     Dates: start: 20220630, end: 20220721
  2. IPILIMUMAB [Suspect]
     Active Substance: IPILIMUMAB
     Indication: Metastatic malignant melanoma
     Dosage: Q3W
     Route: 042
     Dates: start: 20220630, end: 20220721

REACTIONS (1)
  - Embolism [Not Recovered/Not Resolved]

NARRATIVE: CASE EVENT DATE: 20220808
